FAERS Safety Report 8034218-6 (Version None)
Quarter: 2012Q1

REPORT INFORMATION
  Report Type: 
  Country: None (occurrence: None)
  Receive Date: 20120110
  Receipt Date: 20120106
  Transmission Date: 20120608
  Serious: Yes (Hospitalization, Other)
  Sender: FDA-Public Use
  Company Number: US-ROCHE-1006246

PATIENT
  Sex: Male
  Weight: 59.02 kg

DRUGS (2)
  1. ACCUTANE [Suspect]
     Indication: ACNE
     Route: 048
     Dates: start: 19970701, end: 19981001
  2. ACCUTANE [Suspect]
     Dates: start: 19990301, end: 19990901

REACTIONS (9)
  - HAEMORRHOIDS [None]
  - COLITIS ULCERATIVE [None]
  - ANAL FISTULA [None]
  - EMOTIONAL DISTRESS [None]
  - IRRITABLE BOWEL SYNDROME [None]
  - CROHN'S DISEASE [None]
  - INFLAMMATORY BOWEL DISEASE [None]
  - ERYTHEMA NODOSUM [None]
  - ANAL ABSCESS [None]
